FAERS Safety Report 8283224 (Version 3)
Quarter: 2012Q4

REPORT INFORMATION
  Report Type: 
  Country: US (occurrence: US)
  Receive Date: 20111209
  Receipt Date: 20121226
  Transmission Date: 20130627
  Serious: Yes (Other)
  Sender: FDA-Public Use
  Company Number: US-ASTRAZENECA-2011SE73087

PATIENT
  Age: 54 Year
  Sex: Male

DRUGS (1)
  1. NEXIUM [Suspect]
     Route: 048

REACTIONS (5)
  - Neoplasm malignant [Unknown]
  - Colon cancer [Unknown]
  - Renal cancer [Unknown]
  - Renal cyst [Unknown]
  - Abdominal discomfort [Unknown]
